FAERS Safety Report 11092140 (Version 1)
Quarter: 2015Q2

REPORT INFORMATION
  Report Type: Report from Study
  Country: CA (occurrence: CA)
  Receive Date: 20150505
  Receipt Date: 20150505
  Transmission Date: 20150821
  Serious: Yes (Other)
  Sender: FDA-Public Use
  Company Number: PHHY2015CA048666

PATIENT
  Age: 70 Year
  Sex: Female

DRUGS (1)
  1. ACLASTA [Suspect]
     Active Substance: ZOLEDRONIC ACID
     Indication: OSTEOPOROSIS
     Dosage: 5 MG, UNK
     Route: 042
     Dates: start: 20100416

REACTIONS (4)
  - Toxic nodular goitre [Unknown]
  - Hypothyroidism [Unknown]
  - Papillary thyroid cancer [Unknown]
  - Hyperparathyroidism primary [Unknown]

NARRATIVE: CASE EVENT DATE: 20150226
